FAERS Safety Report 24527908 (Version 2)
Quarter: 2024Q4

REPORT INFORMATION
  Report Type: Report from Study
  Country: PK (occurrence: PK)
  Receive Date: 20241021
  Receipt Date: 20241107
  Transmission Date: 20250115
  Serious: Yes (Death)
  Sender: ROCHE
  Company Number: PK-ROCHE-10000107060

PATIENT
  Age: 21 Year
  Sex: Male

DRUGS (1)
  1. MABTHERA [Suspect]
     Active Substance: RITUXIMAB
     Indication: Diffuse large B-cell lymphoma
     Dosage: BATCH NUMBER OF COMMERCIAL PURCHASE IS NOT AVAILABLE
     Route: 058
     Dates: start: 20240829, end: 20240829

REACTIONS (5)
  - Viral infection [Fatal]
  - Diarrhoea [Fatal]
  - Nausea [Fatal]
  - Pyrexia [Fatal]
  - Blood pressure inadequately controlled [Fatal]
